FAERS Safety Report 5054986-5 (Version None)
Quarter: 2006Q3

REPORT INFORMATION
  Report Type: 
  Country: None (occurrence: None)
  Receive Date: 20060719
  Receipt Date: 20060602
  Transmission Date: 20061208
  Serious: Yes (Life-Threatening, Hospitalization)
  Sender: FDA-Public Use
  Company Number: JP-JPN-A200601857

PATIENT
  Age: 24 Year
  Sex: Male

DRUGS (10)
  1. PAXIL [Suspect]
     Indication: DEPRESSION
     Route: 048
     Dates: start: 20060515, end: 20060531
  2. ETIZOLAM [Concomitant]
     Indication: DEPRESSION
     Dosage: .5MG TWICE PER DAY
     Route: 048
     Dates: start: 20060518
  3. JAPANESE MEDICATION [Concomitant]
     Indication: HEADACHE
     Dosage: 2U PER DAY
     Route: 048
     Dates: start: 20060510, end: 20060612
  4. MUCOSTA [Concomitant]
     Indication: GASTRITIS
     Dosage: 2U PER DAY
     Route: 048
     Dates: start: 20060510, end: 20060612
  5. DEZOLAM [Concomitant]
     Indication: DEPRESSION
     Route: 048
     Dates: start: 20060510, end: 20060612
  6. RISPERDAL [Concomitant]
     Indication: DEPRESSION
     Route: 048
     Dates: start: 20060522, end: 20060607
  7. MYSLEE [Concomitant]
     Indication: DEPRESSION
     Dosage: 1U PER DAY
     Route: 048
     Dates: start: 20060529, end: 20060529
  8. ISOTONIC SODIUM CHLORIDE [Concomitant]
     Indication: DEPRESSION
     Dosage: 1U PER DAY
     Route: 042
     Dates: start: 20060522, end: 20060605
  9. DOGMATYL [Concomitant]
     Indication: DEPRESSION
     Route: 030
     Dates: start: 20060522, end: 20060605
  10. JAPANESE MEDICATION [Concomitant]
     Indication: DEPRESSION
     Dosage: .5U PER DAY
     Route: 042
     Dates: start: 20060522, end: 20060605

REACTIONS (6)
  - ADVERSE DRUG REACTION [None]
  - ANXIETY [None]
  - FATIGUE [None]
  - FEELING OF DESPAIR [None]
  - IMPULSIVE BEHAVIOUR [None]
  - IRRITABILITY [None]
